FAERS Safety Report 5939736-X (Version None)
Quarter: 2008Q4

REPORT INFORMATION
  Report Type: 
  Country: None (occurrence: None)
  Receive Date: 20081030
  Receipt Date: 20081030
  Transmission Date: 20090506
  Serious: Yes (Other)
  Sender: FDA-Public Use
  Company Number: None

PATIENT
  Age: 21 Year
  Sex: Female
  Weight: 58.9676 kg

DRUGS (1)
  1. SERTRALINE [Suspect]
     Indication: POSTURAL ORTHOSTATIC TACHYCARDIA SYNDROME
     Dosage: 1/2 OF 25 MG TAB. 1 PER DAY ORAL
     Route: 048
     Dates: start: 20071201

REACTIONS (7)
  - ANGER [None]
  - DEPRESSION [None]
  - DISORIENTATION [None]
  - INAPPROPRIATE AFFECT [None]
  - MEMORY IMPAIRMENT [None]
  - MOOD SWINGS [None]
  - TREMOR [None]
